FAERS Safety Report 17202887 (Version 1)
Quarter: 2019Q4

REPORT INFORMATION
  Report Type: Spontaneous
  Country: IT (occurrence: IT)
  Receive Date: 20191226
  Receipt Date: 20191226
  Transmission Date: 20200122
  Serious: Yes (Hospitalization)
  Sender: FDA-Public Use
  Company Number: IT-ASTRAZENECA-2019SF84760

PATIENT
  Age: 77 Year
  Sex: Female

DRUGS (5)
  1. TAVOR [Concomitant]
  2. TRITTICO [Concomitant]
     Active Substance: TRAZODONE HYDROCHLORIDE
  3. DEPAKIN [Concomitant]
     Active Substance: VALPROATE SODIUM
  4. QUETIAPINE FUMARATE. [Suspect]
     Active Substance: QUETIAPINE FUMARATE
     Indication: BIPOLAR DISORDER
     Route: 048
     Dates: start: 20190730, end: 20190806
  5. COTAREG [Concomitant]
     Active Substance: HYDROCHLOROTHIAZIDE\VALSARTAN

REACTIONS (1)
  - Sopor [Unknown]

NARRATIVE: CASE EVENT DATE: 20190806
